FAERS Safety Report 10697648 (Version 1)
Quarter: 2015Q1

REPORT INFORMATION
  Report Type: Spontaneous
  Country: US (occurrence: US)
  Receive Date: 20150108
  Receipt Date: 20150108
  Transmission Date: 20150721
  Serious: Yes (Death, Other)
  Sender: FDA-Public Use
  Company Number: US-PFIZER INC-2015006631

PATIENT
  Age: 53 Year
  Sex: Male
  Weight: 59 kg

DRUGS (1)
  1. NICOTROL [Suspect]
     Active Substance: NICOTINE
     Dosage: UNSPECIFIED DOSE (STRENGTH 10MG)
     Route: 055

REACTIONS (2)
  - Death [Fatal]
  - Intentional self-injury [Unknown]

NARRATIVE: CASE EVENT DATE: 20141231
